FAERS Safety Report 11429189 (Version 2)
Quarter: 2015Q4

REPORT INFORMATION
  Report Type: Spontaneous
  Country: US (occurrence: US)
  Receive Date: 20150828
  Receipt Date: 20151130
  Transmission Date: 20160304
  Serious: Yes (Other)
  Sender: FDA-Public Use
  Company Number: US-ROCHE-ITM201412IM008021

PATIENT
  Sex: Male
  Weight: 98.97 kg

DRUGS (2)
  1. ESBRIET [Suspect]
     Active Substance: PIRFENIDONE
     Indication: IDIOPATHIC PULMONARY FIBROSIS
     Dosage: TAKE 3 CAPSULES BY MOUTH THREE TIMES A DAY WITH FOOD.
     Route: 048
     Dates: start: 20141211, end: 20151117
  2. CARTIA (UNITED STATES) [Concomitant]
     Route: 065

REACTIONS (4)
  - Heart rate increased [Unknown]
  - Discomfort [Unknown]
  - Cough [Unknown]
  - Rash [Unknown]
